FAERS Safety Report 6051572-5 (Version None)
Quarter: 2009Q1

REPORT INFORMATION
  Report Type: 
  Country: None (occurrence: None)
  Receive Date: 20090126
  Receipt Date: 20090119
  Transmission Date: 20090719
  Serious: Yes (Hospitalization)
  Sender: FDA-Public Use
  Company Number: B0555007A

PATIENT
  Age: 53 Year
  Sex: Male

DRUGS (15)
  1. ZELITREX [Suspect]
     Route: 048
     Dates: start: 20080901, end: 20081214
  2. PROPYL-THIOURACIL [Suspect]
     Indication: HYPERTHYROIDISM
     Dosage: 6UNIT PER DAY
     Route: 048
     Dates: start: 20081120, end: 20081205
  3. BACTRIM [Suspect]
     Dosage: 1UNIT PER DAY
     Route: 048
     Dates: start: 20080901, end: 20081214
  4. CELLCEPT [Suspect]
     Route: 048
     Dates: start: 20080901, end: 20081214
  5. ASPEGIC 325 [Concomitant]
     Route: 065
  6. ATARAX [Concomitant]
     Route: 065
  7. IMOVANE [Concomitant]
     Route: 065
  8. CARVEDILOL [Concomitant]
     Route: 065
  9. MAGNE B6 [Concomitant]
     Route: 065
  10. MOPRAL [Concomitant]
     Route: 065
  11. SOLUPRED [Concomitant]
  12. CALCIDIA [Concomitant]
     Route: 065
  13. LANTUS [Concomitant]
     Route: 065
  14. NOVORAPID [Concomitant]
     Route: 065
  15. NEORAL [Concomitant]
     Route: 065

REACTIONS (2)
  - AGRANULOCYTOSIS [None]
  - PROSTATITIS [None]
